FAERS Safety Report 4279118-2 (Version None)
Quarter: 2004Q1

REPORT INFORMATION
  Report Type: 
  Country: None (occurrence: None)
  Receive Date: 20040122
  Receipt Date: 20040106
  Transmission Date: 20041129
  Serious: Yes (Hospitalization, Other)
  Sender: FDA-Public Use
  Company Number: 189871

PATIENT
  Age: 35 Year
  Sex: Female

DRUGS (1)
  1. AVONEX [Suspect]
     Indication: MULTIPLE SCLEROSIS
     Dosage: 30 MCG QW IM
     Dates: start: 20020201, end: 20030501

REACTIONS (4)
  - BENIGN INTRACRANIAL HYPERTENSION [None]
  - BLINDNESS [None]
  - DEPRESSION [None]
  - HAEMANGIOMA [None]
